FAERS Safety Report 5869773-5 (Version None)
Quarter: 2008Q3

REPORT INFORMATION
  Report Type: 
  Country: None (occurrence: None)
  Receive Date: 20080904
  Receipt Date: 20080825
  Transmission Date: 20090109
  Serious: No
  Sender: FDA-Public Use
  Company Number: AR-ROCHE-573019

PATIENT
  Age: 31 Year
  Sex: Female

DRUGS (1)
  1. ROACCUTAN [Suspect]
     Indication: ACNE
     Route: 048
     Dates: start: 20080501, end: 20080530

REACTIONS (2)
  - NO ADVERSE EVENT [None]
  - PREGNANCY [None]
